FAERS Safety Report 4615554-X (Version None)
Quarter: 2005Q1

REPORT INFORMATION
  Report Type: 
  Country: None (occurrence: None)
  Receive Date: 20050322
  Receipt Date: 20050210
  Transmission Date: 20050727
  Serious: Yes (Life-Threatening, Hospitalization, Other)
  Sender: FDA-Public Use
  Company Number: US-MERCK-0502USA01349

PATIENT
  Age: 61 Year
  Sex: Female
  Weight: 100 kg

DRUGS (5)
  1. DECADRON [Suspect]
     Indication: CHEMOTHERAPY
     Route: 042
     Dates: start: 20050202, end: 20050202
  2. KYTRIL [Concomitant]
     Indication: PROPHYLAXIS OF NAUSEA AND VOMITING
     Route: 065
     Dates: start: 20050202, end: 20050205
  3. TAXOTERE [Concomitant]
     Indication: CHEMOTHERAPY
     Route: 042
     Dates: start: 20050202, end: 20050202
  4. DECADRON [Suspect]
     Indication: CHEMOTHERAPY
     Route: 048
     Dates: start: 20050201, end: 20050203
  5. DECADRON [Suspect]
     Route: 048
     Dates: start: 20050301

REACTIONS (3)
  - CHRONIC OBSTRUCTIVE PULMONARY DISEASE [None]
  - HYPOTENSION [None]
  - RESPIRATORY FAILURE [None]
